FAERS Safety Report 9883610 (Version 1)
Quarter: 2014Q1

REPORT INFORMATION
  Report Type: Other
  Country: IT (occurrence: IT)
  Receive Date: 20140210
  Receipt Date: 20140210
  Transmission Date: 20141002
  Serious: Yes (Other)
  Sender: FDA-Public Use
  Company Number: IT-BRISTOL-MYERS SQUIBB COMPANY-20146205

PATIENT
  Age: 33 Year
  Sex: Male

DRUGS (1)
  1. TRIAMCINOLONE ACE INJ [Suspect]
     Indication: TENOSYNOVITIS
     Dosage: 1 DF: DRUG } 2,400 MG TWO OR THREE TIMES A DAY
     Route: 030

REACTIONS (4)
  - Cushing^s syndrome [Unknown]
  - Secondary adrenocortical insufficiency [Unknown]
  - Secondary hypogonadism [Unknown]
  - Abscess sterile [Unknown]
